FAERS Safety Report 5822980-X (Version None)
Quarter: 2008Q3

REPORT INFORMATION
  Report Type: 
  Country: None (occurrence: None)
  Receive Date: 20080725
  Receipt Date: 20080714
  Transmission Date: 20090109
  Serious: Yes (Hospitalization, Other)
  Sender: FDA-Public Use
  Company Number: B0359490A

PATIENT
  Age: 41 Year
  Sex: Female

DRUGS (6)
  1. SEROXAT [Suspect]
     Route: 065
     Dates: start: 20010918, end: 20041108
  2. ZOPICLONE [Concomitant]
     Route: 065
  3. DIAZEPAM [Concomitant]
     Route: 065
     Dates: start: 20010718
  4. CARBAMAZEPINE [Concomitant]
     Route: 065
     Dates: start: 20040401
  5. FLUOXETINE [Concomitant]
     Route: 065
     Dates: start: 20041001
  6. TEMAZEPAM [Concomitant]

REACTIONS (41)
  - AGITATION [None]
  - AGORAPHOBIA [None]
  - ANOREXIA [None]
  - ANXIETY [None]
  - CHEST PAIN [None]
  - CHOKING SENSATION [None]
  - CLAUSTROPHOBIA [None]
  - CONVERSION DISORDER [None]
  - CONVULSION [None]
  - CRYING [None]
  - DEPRESSED MOOD [None]
  - DIARRHOEA [None]
  - DISTURBANCE IN ATTENTION [None]
  - DRUG INTOLERANCE [None]
  - DRUG WITHDRAWAL SYNDROME [None]
  - FAECAL INCONTINENCE [None]
  - FEAR [None]
  - HEAD INJURY [None]
  - HEADACHE [None]
  - INCONTINENCE [None]
  - INSOMNIA [None]
  - LOSS OF CONSCIOUSNESS [None]
  - MALAISE [None]
  - MENTAL DISORDER [None]
  - MOOD SWINGS [None]
  - MUSCULOSKELETAL STIFFNESS [None]
  - NEGATIVISM [None]
  - NIGHTMARE [None]
  - OVERDOSE [None]
  - PANIC ATTACK [None]
  - POOR QUALITY SLEEP [None]
  - PSYCHOTIC DISORDER [None]
  - SMEAR CERVIX ABNORMAL [None]
  - SOCIAL AVOIDANT BEHAVIOUR [None]
  - SUICIDAL IDEATION [None]
  - SUICIDE ATTEMPT [None]
  - SYNCOPE [None]
  - TREMOR [None]
  - URINARY INCONTINENCE [None]
  - VISION BLURRED [None]
  - VOMITING [None]
